FAERS Safety Report 16225337 (Version 2)
Quarter: 2019Q2

REPORT INFORMATION
  Report Type: Report from Study
  Country: US (occurrence: US)
  Receive Date: 20190422
  Receipt Date: 20190524
  Transmission Date: 20190711
  Serious: Yes (Hospitalization)
  Sender: FDA-Public Use
  Company Number: US-PFIZER INC-2019163508

PATIENT
  Age: 51 Year
  Sex: Male
  Weight: 79.3 kg

DRUGS (5)
  1. CYTARABINE. [Suspect]
     Active Substance: CYTARABINE
     Dosage: 190 MG, DAILY BY CONTINUOUS INFUSION
     Route: 041
     Dates: start: 20190304, end: 20190312
  2. DAUNORUBICIN [Suspect]
     Active Substance: DAUNORUBICIN
     Indication: ACUTE MYELOID LEUKAEMIA
     Dosage: 120 MG, DAILY BY CONTINUOUS INFUSION
     Route: 041
     Dates: start: 20190215, end: 20190217
  3. CYTARABINE. [Suspect]
     Active Substance: CYTARABINE
     Indication: ACUTE MYELOID LEUKAEMIA
     Dosage: 195 MG, DAILY BY CONTINUOUS INFUSION
     Route: 041
     Dates: start: 20190215, end: 20190221
  4. GLASDEGIB [Suspect]
     Active Substance: GLASDEGIB
     Indication: ACUTE MYELOID LEUKAEMIA
     Dosage: ONCE DAILY CONTINUOUS
     Route: 048
     Dates: start: 20190215, end: 20190409
  5. DAUNORUBICIN [Suspect]
     Active Substance: DAUNORUBICIN
     Dosage: 110 MG, DAILY BY CONTINUOUS INFUSION
     Route: 041
     Dates: start: 20190306, end: 20190308

REACTIONS (2)
  - Sepsis [Recovered/Resolved]
  - Lung infection [Recovered/Resolved with Sequelae]

NARRATIVE: CASE EVENT DATE: 20190411
